FAERS Safety Report 10461258 (Version 1)
Quarter: 2014Q3

REPORT INFORMATION
  Report Type: Spontaneous
  Country: IT (occurrence: None)
  Receive Date: 20140916
  Receipt Date: 20140916
  Transmission Date: 20150326
  Serious: Yes (Hospitalization)
  Sender: FDA-Public Use
  Company Number: B1030335A

PATIENT
  Age: 68 Year
  Sex: Male

DRUGS (7)
  1. PAROXETINE HYDROCHLORIDE TABLET (PAROXETINE HYDROCHLORIDE) [Suspect]
     Active Substance: PAROXETINE HYDROCHLORIDE
     Indication: ANXIETY
  2. TELMISARTAN TABLET (TELMISARTAN) [Suspect]
     Active Substance: TELMISARTAN
     Indication: CARDIOVASCULAR DISORDER
  3. INSULIN [Concomitant]
     Active Substance: INSULIN NOS
  4. INT./LONG-ACTING INSULIN [Concomitant]
  5. OMEPRAZOLE. [Concomitant]
     Active Substance: OMEPRAZOLE
  6. TAMSULOSIN HCL [Concomitant]
     Active Substance: TAMSULOSIN
  7. ROSUVASTATIN CALCIUM [Concomitant]
     Active Substance: ROSUVASTATIN CALCIUM

REACTIONS (6)
  - Drug interaction [None]
  - Nausea [None]
  - Diarrhoea [None]
  - Hyperglycaemia [None]
  - Vomiting [None]
  - Abdominal pain [None]

NARRATIVE: CASE EVENT DATE: 20140807
